FAERS Safety Report 6201687-3 (Version None)
Quarter: 2009Q2

REPORT INFORMATION
  Report Type: 
  Country: None (occurrence: None)
  Receive Date: 20090526
  Receipt Date: 20090514
  Transmission Date: 20091009
  Serious: Yes (Other)
  Sender: FDA-Public Use
  Company Number: US-BAYER-200920970NA

PATIENT
  Age: 30 Year
  Sex: Female

DRUGS (5)
  1. MIRENA [Suspect]
     Indication: CONTRACEPTION
     Dosage: CONTINUOUS
     Route: 015
     Dates: start: 20090302
  2. WELLBUTRIN [Concomitant]
  3. ZOLOFT [Concomitant]
  4. NEXIUM [Concomitant]
  5. VITAMIN TAB [Concomitant]

REACTIONS (1)
  - HYPOAESTHESIA [None]
